FAERS Safety Report 4629316-0 (Version None)
Quarter: 2005Q2

REPORT INFORMATION
  Report Type: 
  Country: None (occurrence: None)
  Receive Date: 20050405
  Receipt Date: 20050322
  Transmission Date: 20051028
  Serious: Yes (Other)
  Sender: FDA-Public Use
  Company Number: S04-USA-07942-01

PATIENT
  Age: 15 Year
  Sex: Female

DRUGS (6)
  1. LEXAPRO [Suspect]
     Indication: DEPRESSION
     Dosage: 15 MG QD PO
     Route: 048
     Dates: start: 20041207, end: 20041211
  2. LEXAPRO [Suspect]
     Indication: DEPRESSION
     Dosage: 10 MG QD PO
     Route: 048
     Dates: start: 20041212
  3. LEXAPRO [Suspect]
     Indication: DEPRESSION
     Dosage: 10 MG QD PO
     Route: 048
     Dates: end: 20041206
  4. RISPERDAL [Concomitant]
  5. TRILEPTAL [Concomitant]
  6. DEPAKOTE ER (DIVALPROEX) [Concomitant]

REACTIONS (6)
  - BIPOLAR DISORDER [None]
  - CONDITION AGGRAVATED [None]
  - DISSOCIATIVE DISORDER [None]
  - SCHIZOAFFECTIVE DISORDER [None]
  - STRESS [None]
  - SYNCOPE [None]
